FAERS Safety Report 5102804-9 (Version None)
Quarter: 2006Q3

REPORT INFORMATION
  Report Type: 
  Country: None (occurrence: None)
  Receive Date: 20060907
  Receipt Date: 20060823
  Transmission Date: 20061208
  Serious: Yes (Hospitalization)
  Sender: FDA-Public Use
  Company Number: GXKR2006GR05184

PATIENT
  Age: 10 Month
  Sex: Female

DRUGS (1)
  1. AMOXICILLIN + CLAVULANATE POTASSIUM (NGX) (AMOXICILLIN, CLAVULANATE) U [Suspect]
     Indication: UPPER RESPIRATORY TRACT INFECTION

REACTIONS (5)
  - NEPHRITIS INTERSTITIAL [None]
  - NORMOCHROMIC NORMOCYTIC ANAEMIA [None]
  - PERITONEAL DIALYSIS [None]
  - RENAL FAILURE ACUTE [None]
  - RENAL HYPERTROPHY [None]
